FAERS Safety Report 7733564-0 (Version None)
Quarter: 2011Q3

REPORT INFORMATION
  Report Type: 
  Country: None (occurrence: None)
  Receive Date: 20110907
  Receipt Date: 20110824
  Transmission Date: 20111222
  Serious: No
  Sender: FDA-Public Use
  Company Number: CA-ELI_LILLY_AND_COMPANY-CA201108007319

PATIENT
  Sex: Male

DRUGS (16)
  1. ZYPREXA [Suspect]
     Indication: BIPOLAR I DISORDER
     Dosage: 5 MG, QD
  2. ZYPREXA [Suspect]
     Dosage: 7.5 MG, EACH EVENING
  3. CITALOPRAM [Concomitant]
  4. CELEBREX [Concomitant]
  5. BEXTRA [Concomitant]
  6. DIVALPROEX SODIUM [Concomitant]
  7. LAMICTAL [Concomitant]
  8. ZYPREXA [Suspect]
     Dosage: 2.5 MG, UNKNOWN
  9. ZYPREXA [Suspect]
     Dosage: 10 MG, EACH EVENING
  10. FLUOXETINE [Concomitant]
  11. PAXIL [Concomitant]
  12. TRAZODONE HCL [Concomitant]
  13. VIOXX [Concomitant]
  14. ZYPREXA [Suspect]
     Dosage: 15 MG, EACH EVENING
  15. LITHANE [Concomitant]
  16. LEVITRA [Concomitant]

REACTIONS (4)
  - HAEMATOCHEZIA [None]
  - DERMATITIS INFECTED [None]
  - PHARYNGITIS [None]
  - TYPE 2 DIABETES MELLITUS [None]
